FAERS Safety Report 7270886-4 (Version None)
Quarter: 2011Q1

REPORT INFORMATION
  Report Type: 
  Country: None (occurrence: None)
  Receive Date: 20110202
  Receipt Date: 20110114
  Transmission Date: 20110831
  Serious: Yes (Other)
  Sender: FDA-Public Use
  Company Number: JP-CEPHALON-2010006468

PATIENT
  Age: 39 Year
  Sex: Male

DRUGS (1)
  1. MODAFINIL [Suspect]
     Indication: NARCOLEPSY
     Dosage: 2 TABLETS
     Route: 048
     Dates: start: 20101031, end: 20101031

REACTIONS (2)
  - RASH GENERALISED [None]
  - URTICARIA [None]
